FAERS Safety Report 16169402 (Version 5)
Quarter: 2020Q2

REPORT INFORMATION
  Report Type: Spontaneous
  Country: CA (occurrence: CA)
  Receive Date: 20190408
  Receipt Date: 20200603
  Transmission Date: 20200713
  Serious: Yes (Hospitalization, Other)
  Sender: FDA-Public Use
  Company Number: CA-PFIZER INC-2019146902

PATIENT
  Age: 59 Year
  Sex: Male

DRUGS (2)
  1. OCTREOTIDE ACETATE. [Suspect]
     Active Substance: OCTREOTIDE ACETATE
     Indication: CARCINOID TUMOUR
     Dosage: 20 MG, MONTHLY
     Route: 030
     Dates: start: 20160915
  2. PANTOPRAZOLE [Suspect]
     Active Substance: PANTOPRAZOLE
     Dosage: UNK
     Route: 065
     Dates: start: 2016

REACTIONS (11)
  - Asthenia [Recovering/Resolving]
  - Throat irritation [Recovering/Resolving]
  - Dyspnoea [Recovering/Resolving]
  - Vocal cord dysfunction [Recovering/Resolving]
  - Intestinal obstruction [Recovering/Resolving]
  - Blood pressure decreased [Recovering/Resolving]
  - Weight decreased [Recovering/Resolving]
  - Cough [Recovering/Resolving]
  - Decubitus ulcer [Recovering/Resolving]
  - Body temperature decreased [Recovering/Resolving]
  - Emphysema [Unknown]

NARRATIVE: CASE EVENT DATE: 201611
